FAERS Safety Report 15862907 (Version 1)
Quarter: 2019Q1

REPORT INFORMATION
  Report Type: Spontaneous
  Country: US (occurrence: US)
  Receive Date: 20190124
  Receipt Date: 20190124
  Transmission Date: 20190417
  Serious: Yes (Other)
  Sender: FDA-Public Use
  Company Number: None

PATIENT
  Age: 74 Year
  Sex: Female
  Weight: 79.65 kg

DRUGS (15)
  1. ACETAMINOPHEN. [Concomitant]
     Active Substance: ACETAMINOPHEN
  2. DOCUSATE [Concomitant]
     Active Substance: DOCUSATE
  3. PANTOPRAZOLE [Concomitant]
     Active Substance: PANTOPRAZOLE
  4. IBRANCE [Suspect]
     Active Substance: PALBOCICLIB
     Indication: BREAST CANCER
     Route: 048
     Dates: start: 20170804, end: 20190121
  5. MIRTAZEPINE [Concomitant]
     Active Substance: MIRTAZAPINE
  6. ANASTROZOLE. [Concomitant]
     Active Substance: ANASTROZOLE
  7. LANTUS [Concomitant]
     Active Substance: INSULIN GLARGINE
  8. CLONAZEPAM. [Concomitant]
     Active Substance: CLONAZEPAM
  9. FENTANYL. [Concomitant]
     Active Substance: FENTANYL
  10. AMLODIPINE [Concomitant]
     Active Substance: AMLODIPINE BESYLATE
  11. LIDOCAINE. [Concomitant]
     Active Substance: LIDOCAINE
  12. METFORMIN [Concomitant]
     Active Substance: METFORMIN HYDROCHLORIDE
  13. CARVEDILOL. [Concomitant]
     Active Substance: CARVEDILOL
  14. ONDANSETRON [Concomitant]
     Active Substance: ONDANSETRON
  15. LOSARTAN. [Concomitant]
     Active Substance: LOSARTAN

REACTIONS (1)
  - Disease progression [None]
